FAERS Safety Report 7709067-6 (Version None)
Quarter: 2011Q3

REPORT INFORMATION
  Report Type: 
  Country: None (occurrence: None)
  Receive Date: 20110825
  Receipt Date: 20110816
  Transmission Date: 20111222
  Serious: Yes (Other)
  Sender: FDA-Public Use
  Company Number: US-ROCHE-778845

PATIENT
  Sex: Female
  Weight: 63.5 kg

DRUGS (3)
  1. ACCUTANE [Suspect]
     Indication: ACNE
     Route: 065
     Dates: start: 19890501, end: 19891001
  2. ACCUTANE [Suspect]
     Route: 065
     Dates: start: 19900501, end: 19900701
  3. ACCUTANE [Suspect]
     Route: 065
     Dates: start: 19920901, end: 19930701

REACTIONS (4)
  - STRESS [None]
  - PROCTITIS ULCERATIVE [None]
  - DEPRESSION [None]
  - INFLAMMATORY BOWEL DISEASE [None]
